FAERS Safety Report 9384812 (Version 1)
Quarter: 2013Q3

REPORT INFORMATION
  Report Type: Spontaneous
  Country: US (occurrence: US)
  Receive Date: 20130705
  Receipt Date: 20130705
  Transmission Date: 20140515
  Serious: No
  Sender: FDA-Public Use
  Company Number: US-PFIZER INC-2012307077

PATIENT
  Age: 53 Year
  Sex: Female

DRUGS (4)
  1. CELEBREX [Suspect]
     Dosage: 200MG ONCE DAILY AS NEEDED WITH FOOD
     Route: 048
  2. NEURONTIN [Suspect]
     Dosage: 100 MG, 3X/DAY
     Route: 048
  3. SKELAXIN [Suspect]
     Dosage: 500 MG, 3X/DAY
  4. VERELAN PM [Concomitant]
     Dosage: 300 MG, 1X/DAY
     Route: 048

REACTIONS (2)
  - Nausea [Unknown]
  - Herpes zoster [Unknown]
